FAERS Safety Report 9301635 (Version 2)
Quarter: 2013Q3

REPORT INFORMATION
  Report Type: Report from Study
  Country: AR (occurrence: AR)
  Receive Date: 20130521
  Receipt Date: 20130717
  Transmission Date: 20140515
  Serious: Yes (Hospitalization, Other)
  Sender: FDA-Public Use
  Company Number: AR-ROCHE-1226513

PATIENT
  Age: 78 Year
  Sex: Female

DRUGS (1)
  1. RANIBIZUMAB [Suspect]
     Indication: MACULOPATHY
     Route: 050
     Dates: start: 2008

REACTIONS (5)
  - Fall [Unknown]
  - Clavicle fracture [Recovering/Resolving]
  - Spinal fracture [Recovering/Resolving]
  - Anal haemorrhage [Recovering/Resolving]
  - Pancreatic duct dilatation [Recovering/Resolving]
